FAERS Safety Report 5508759-7 (Version None)
Quarter: 2007Q4

REPORT INFORMATION
  Report Type: 
  Country: None (occurrence: None)
  Receive Date: 20071107
  Receipt Date: 20071102
  Transmission Date: 20080405
  Serious: Yes (Other)
  Sender: FDA-Public Use
  Company Number: A0691263A

PATIENT
  Age: 72 Year
  Sex: Female

DRUGS (7)
  1. ADVAIR DISKUS 100/50 [Suspect]
     Indication: CHRONIC OBSTRUCTIVE PULMONARY DISEASE
     Dosage: 1PUFF TWICE PER DAY
     Route: 055
     Dates: start: 20070501
  2. VALTREX [Suspect]
     Indication: DRUG USE FOR UNKNOWN INDICATION
     Dosage: 500MG PER DAY
     Route: 048
  3. ASPIRIN [Concomitant]
  4. ZYRTEC [Concomitant]
  5. PROAIR HFA [Concomitant]
  6. ELOCON [Concomitant]
  7. ALBUTEROL [Concomitant]

REACTIONS (3)
  - APHONIA [None]
  - ARTHRALGIA [None]
  - MACULAR DEGENERATION [None]
